FAERS Safety Report 14452657 (Version 2)
Quarter: 2018Q1

REPORT INFORMATION
  Report Type: Spontaneous
  Country: AU (occurrence: AU)
  Receive Date: 20180129
  Receipt Date: 20180220
  Transmission Date: 20180509
  Serious: Yes (Other)
  Sender: FDA-Public Use
  Company Number: AU-JNJFOC-20180126447

PATIENT
  Sex: Female

DRUGS (2)
  1. STELARA [Suspect]
     Active Substance: USTEKINUMAB
     Indication: CROHN^S DISEASE
     Route: 042
  2. METHOTREXATE. [Suspect]
     Active Substance: METHOTREXATE
     Indication: PRODUCT USED FOR UNKNOWN INDICATION
     Route: 065

REACTIONS (13)
  - Intestinal stenosis [Not Recovered/Not Resolved]
  - Cholecystectomy [Unknown]
  - Crohn^s disease [Not Recovered/Not Resolved]
  - Cognitive disorder [Unknown]
  - Headache [Unknown]
  - Hyperhidrosis [Unknown]
  - Hepatic pain [Not Recovered/Not Resolved]
  - Gait disturbance [Unknown]
  - Abdominal abscess [Recovering/Resolving]
  - Intestinal obstruction [Not Recovered/Not Resolved]
  - Lower respiratory tract infection [Recovered/Resolved]
  - Nasopharyngitis [Recovered/Resolved]
  - Liver function test increased [Unknown]
